FAERS Safety Report 4650454-0 (Version None)
Quarter: 2005Q2

REPORT INFORMATION
  Report Type: 
  Country: None (occurrence: None)
  Receive Date: 20050429
  Receipt Date: 20050420
  Transmission Date: 20051028
  Serious: Yes (Death, Other)
  Sender: FDA-Public Use
  Company Number: 2005-04-1455

PATIENT
  Age: 68 Year
  Sex: Male

DRUGS (2)
  1. INTRON A [Suspect]
     Indication: MYCOSIS FUNGOIDES STAGE I
     Dosage: 3-5 MIU TIW
  2. ISOTRETINOIN [Suspect]
     Indication: MYCOSIS FUNGOIDES STAGE I
     Dosage: 80 MG/D

REACTIONS (11)
  - ACUTE FEBRILE NEUTROPHILIC DERMATOSIS [None]
  - C-REACTIVE PROTEIN INCREASED [None]
  - CONDITION AGGRAVATED [None]
  - GENERAL PHYSICAL HEALTH DETERIORATION [None]
  - MYCOSIS FUNGOIDES [None]
  - PERIPHERAL T-CELL LYMPHOMA UNSPECIFIED [None]
  - PYODERMA GANGRENOSUM [None]
  - RED BLOOD CELL SEDIMENTATION RATE INCREASED [None]
  - RESPIRATORY FAILURE [None]
  - THERAPY NON-RESPONDER [None]
  - WEIGHT DECREASED [None]
